FAERS Safety Report 7331819-5 (Version None)
Quarter: 2011Q1

REPORT INFORMATION
  Report Type: 
  Country: None (occurrence: None)
  Receive Date: 20110304
  Receipt Date: 20110224
  Transmission Date: 20110831
  Serious: Yes (Other)
  Sender: FDA-Public Use
  Company Number: US-AMGEN-USASP2011010866

PATIENT
  Age: 64 Year
  Sex: Female

DRUGS (1)
  1. PROLIA [Suspect]
     Indication: OSTEOPOROSIS POSTMENOPAUSAL
     Dates: start: 20110218

REACTIONS (6)
  - RENAL IMPAIRMENT [None]
  - CHEST PAIN [None]
  - PAIN IN EXTREMITY [None]
  - MYALGIA [None]
  - JOINT LOCK [None]
  - HYPOKINESIA [None]
